FAERS Safety Report 7199666-5 (Version None)
Quarter: 2010Q4

REPORT INFORMATION
  Report Type: 
  Country: None (occurrence: None)
  Receive Date: 20101228
  Receipt Date: 20101217
  Transmission Date: 20110411
  Serious: Yes (Other)
  Sender: FDA-Public Use
  Company Number: NL-ELI_LILLY_AND_COMPANY-NL201012005403

PATIENT
  Sex: Female
  Weight: 85 kg

DRUGS (6)
  1. FORTEO [Suspect]
     Indication: MASTOCYTOSIS
     Dosage: UNK UNK, DAILY (1/D)
     Route: 058
     Dates: start: 20100423
  2. CALCIUM CARBONATE [Concomitant]
     Indication: OSTEOPOROSIS
     Dosage: UNK UNK, DAILY (1/D)
     Route: 048
     Dates: start: 20091001
  3. COLECALCIFEROL [Concomitant]
     Indication: OSTEOPOROSIS
     Dosage: 400 IE, 3/D
     Route: 048
     Dates: start: 20091001
  4. EPINEPHRINE [Concomitant]
     Indication: MASTOCYTOSIS
     Dosage: 0.3 INJV 1MG/ML WWSP 0.3ML, UNKNOWN
     Route: 065
     Dates: start: 20100101
  5. LEVOCETIRIZINE DIHYDROCHLORIDE [Concomitant]
     Indication: MASTOCYTOSIS
     Dosage: 5 MG, DAILY (1/D)
     Route: 048
     Dates: start: 20100101
  6. RANITIDINE [Concomitant]
     Indication: MASTOCYTOSIS
     Dosage: 150 MG, 2/D
     Route: 048

REACTIONS (6)
  - DEPRESSIVE SYMPTOM [None]
  - DIZZINESS [None]
  - EXFOLIATIVE RASH [None]
  - INCONTINENCE [None]
  - MUSCLE SPASMS [None]
  - OFF LABEL USE [None]
